FAERS Safety Report 17958603 (Version 44)
Quarter: 2025Q3

REPORT INFORMATION
  Report Type: Report from Study
  Country: US (occurrence: US)
  Receive Date: 20200630
  Receipt Date: 20250916
  Transmission Date: 20251021
  Serious: Yes (Hospitalization, Other)
  Sender: TAKEDA
  Company Number: US-SHIRE-US202021042

PATIENT
  Age: 69 Year
  Sex: Female
  Weight: 110 kg

DRUGS (56)
  1. HUMAN IMMUNOGLOBULIN G [Suspect]
     Active Substance: HUMAN IMMUNOGLOBULIN G
     Indication: Immunodeficiency common variable
     Dosage: 18 GRAM, 1/WEEK
     Dates: start: 20121116
  2. HUMAN IMMUNOGLOBULIN G [Suspect]
     Active Substance: HUMAN IMMUNOGLOBULIN G
     Dosage: 18 GRAM, 1/WEEK
  3. PREDNISONE [Suspect]
     Active Substance: PREDNISONE
     Indication: Product used for unknown indication
  4. METFORMIN [Suspect]
     Active Substance: METFORMIN HYDROCHLORIDE
     Indication: Product used for unknown indication
  5. DILAUDID [Suspect]
     Active Substance: HYDROMORPHONE HYDROCHLORIDE
     Indication: Pain
  6. CIPROFLOXACIN [Suspect]
     Active Substance: CIPROFLOXACIN
     Indication: Product used for unknown indication
  7. DUPIXENT [Suspect]
     Active Substance: DUPILUMAB
     Indication: Product used for unknown indication
  8. GABAPENTIN [Suspect]
     Active Substance: GABAPENTIN
     Indication: Product used for unknown indication
  9. DOXYCYCLINE [Suspect]
     Active Substance: DOXYCYCLINE
     Indication: Product used for unknown indication
  10. ACETAMINOPHEN [Concomitant]
     Active Substance: ACETAMINOPHEN
  11. VITAMIN B [Concomitant]
     Active Substance: VITAMIN B
  12. NASONEX [Concomitant]
     Active Substance: MOMETASONE FUROATE
  13. SYNTHROID [Concomitant]
     Active Substance: LEVOTHYROXINE SODIUM
  14. VITAMIN D [Concomitant]
     Active Substance: VITAMIN D NOS
  15. PROAIR HFA [Concomitant]
     Active Substance: ALBUTEROL SULFATE
  16. MUCUS RELIEF [Concomitant]
     Active Substance: GUAIFENESIN
  17. PROTONIX [Concomitant]
     Active Substance: PANTOPRAZOLE SODIUM
  18. OXYGEN [Concomitant]
     Active Substance: OXYGEN
  19. NYSTATIN [Concomitant]
     Active Substance: NYSTATIN
  20. DIPHENHYDRAMINE HYDROCHLORIDE [Concomitant]
     Active Substance: DIPHENHYDRAMINE HYDROCHLORIDE
  21. CETIRIZINE HCL [Concomitant]
     Active Substance: CETIRIZINE HYDROCHLORIDE
  22. FLUCONAZOLE [Concomitant]
     Active Substance: FLUCONAZOLE
  23. ASPIRIN [Concomitant]
     Active Substance: ASPIRIN
  24. IPRATROPIUM BROMIDE [Concomitant]
     Active Substance: IPRATROPIUM BROMIDE
  25. GLIPIZIDE [Concomitant]
     Active Substance: GLIPIZIDE
  26. XOPENEX [Concomitant]
     Active Substance: LEVALBUTEROL HYDROCHLORIDE
  27. LOVASTATIN [Concomitant]
     Active Substance: LOVASTATIN
  28. Robitussin cough, cold + flu [Concomitant]
  29. BETADINE [Concomitant]
     Active Substance: POVIDONE-IODINE
  30. EPINEPHRINE [Concomitant]
     Active Substance: EPINEPHRINE
  31. GABAPENTIN [Concomitant]
     Active Substance: GABAPENTIN
  32. ZOLOFT [Concomitant]
     Active Substance: SERTRALINE HYDROCHLORIDE
  33. DOXYCYCLINE HYCLATE [Concomitant]
     Active Substance: DOXYCYCLINE HYCLATE
  34. TRULICITY [Concomitant]
     Active Substance: DULAGLUTIDE
  35. LORAZEPAM [Concomitant]
     Active Substance: LORAZEPAM
  36. ACIDOPHILUS [Concomitant]
     Active Substance: LACTOBACILLUS ACIDOPHILUS
  37. NITROGLYCERIN [Concomitant]
     Active Substance: NITROGLYCERIN
  38. TYLENOL WITH CODEINE [Concomitant]
     Active Substance: ACETAMINOPHEN\CODEINE PHOSPHATE
  39. VITAMIN B12 [Concomitant]
     Active Substance: CYANOCOBALAMIN
  40. VITAMIN D2 [Concomitant]
     Active Substance: ERGOCALCIFEROL
  41. ATROPA BELLADONNA\HOMEOPATHICS [Concomitant]
     Active Substance: ATROPA BELLADONNA\HOMEOPATHICS
  42. CALCIUM [Concomitant]
     Active Substance: CALCIUM
  43. AMOXICILLIN [Concomitant]
     Active Substance: AMOXICILLIN
  44. XANAX [Concomitant]
     Active Substance: ALPRAZOLAM
  45. CETIRIZINE [Concomitant]
     Active Substance: CETIRIZINE HYDROCHLORIDE
  46. Moldamin [Concomitant]
  47. ZYFLO [Concomitant]
     Active Substance: ZILEUTON
  48. NAPROXEN [Concomitant]
     Active Substance: NAPROXEN
  49. HIZENTRA [Concomitant]
     Active Substance: HUMAN IMMUNOGLOBULIN G
  50. LEVAQUIN [Concomitant]
     Active Substance: LEVOFLOXACIN
  51. POVIDONE-IODINE [Concomitant]
     Active Substance: POVIDONE-IODINE
  52. EFFEXOR [Concomitant]
     Active Substance: VENLAFAXINE HYDROCHLORIDE
  53. PEPCID [Concomitant]
     Active Substance: FAMOTIDINE
  54. Advil cold [Concomitant]
  55. VICKS NYQUIL [Concomitant]
     Active Substance: ACETAMINOPHEN\DEXTROMETHORPHAN HYDROBROMIDE\DOXYLAMINE SUCCINATE
  56. DONNATAL [Concomitant]
     Active Substance: ATROPINE SULFATE\HYOSCYAMINE SULFATE\PHENOBARBITAL\SCOPOLAMINE HYDROBROMIDE

REACTIONS (48)
  - Limb injury [Unknown]
  - Pneumonia [Unknown]
  - Gastrointestinal fungal infection [Unknown]
  - Bronchitis [Unknown]
  - Chest pain [Unknown]
  - Swollen tongue [Unknown]
  - Lip swelling [Unknown]
  - Road traffic accident [Unknown]
  - Illness [Unknown]
  - Oral fungal infection [Unknown]
  - Epstein-Barr virus infection [Unknown]
  - Viral upper respiratory tract infection [Unknown]
  - Blood calcium decreased [Unknown]
  - COVID-19 [Recovered/Resolved]
  - Mononucleosis heterophile test positive [Unknown]
  - Constipation [Unknown]
  - Urinary tract infection [Unknown]
  - Gastrointestinal disorder [Unknown]
  - Oropharyngeal candidiasis [Unknown]
  - Hernia [Unknown]
  - Drug hypersensitivity [Unknown]
  - Jaw disorder [Unknown]
  - Pharyngitis [Unknown]
  - Weight increased [Unknown]
  - Fall [Unknown]
  - Furuncle [Unknown]
  - Blood glucose increased [Unknown]
  - Product dose omission issue [Unknown]
  - Asthma [Unknown]
  - Sinusitis [Unknown]
  - Oral candidiasis [Unknown]
  - Upper respiratory tract infection [Not Recovered/Not Resolved]
  - Influenza [Unknown]
  - Feeling abnormal [Unknown]
  - Nasal congestion [Unknown]
  - Throat tightness [Unknown]
  - Wheezing [Unknown]
  - Oropharyngeal pain [Unknown]
  - Abdominal pain upper [Unknown]
  - Cough [Unknown]
  - Infusion site erythema [Unknown]
  - Pain [Unknown]
  - Malaise [Unknown]
  - Dyspnoea [Unknown]
  - Pyrexia [Unknown]
  - Back pain [Unknown]
  - Vomiting [Unknown]
  - Fatigue [Unknown]

NARRATIVE: CASE EVENT DATE: 20250224
